FAERS Safety Report 26037839 (Version 1)
Quarter: 2025Q4

REPORT INFORMATION
  Report Type: Spontaneous
  Country: US (occurrence: US)
  Receive Date: 20251112
  Receipt Date: 20251112
  Transmission Date: 20260118
  Serious: No
  Sender: BRACCO
  Company Number: US-BRACCO-2025US03280

PATIENT
  Age: 68 Year
  Sex: Male

DRUGS (3)
  1. LUMASON [Suspect]
     Active Substance: SULFUR HEXAFLUORIDE
     Indication: Imaging procedure
     Dosage: 3 ML, SINGLE
     Route: 042
     Dates: start: 20250518, end: 20250518
  2. LUMASON [Suspect]
     Active Substance: SULFUR HEXAFLUORIDE
     Indication: Imaging procedure
     Dosage: 3 ML, SINGLE
     Route: 042
     Dates: start: 20250518, end: 20250518
  3. LUMASON [Suspect]
     Active Substance: SULFUR HEXAFLUORIDE
     Indication: Imaging procedure
     Dosage: 3 ML, SINGLE
     Route: 042
     Dates: start: 20250518, end: 20250518

REACTIONS (4)
  - Presyncope [Recovered/Resolved]
  - Nausea [Recovered/Resolved]
  - Oxygen saturation decreased [Recovered/Resolved]
  - Back pain [Recovered/Resolved]

NARRATIVE: CASE EVENT DATE: 20250518
